FAERS Safety Report 24736622 (Version 2)
Quarter: 2024Q4

REPORT INFORMATION
  Report Type: Report from Study
  Country: ES (occurrence: None)
  Receive Date: 20241216
  Receipt Date: 20241219
  Transmission Date: 20250114
  Serious: Yes (Hospitalization, Other)
  Sender: ORION
  Company Number: ES-ABBVIE-6025514

PATIENT
  Age: 77 Year
  Sex: Male

DRUGS (5)
  1. COMTAN [Suspect]
     Active Substance: ENTACAPONE
     Indication: Product used for unknown indication
     Dosage: DOSE- HALF A TABLET EVERY 8 HOURS
     Dates: end: 202411
  2. COMTAN [Suspect]
     Active Substance: ENTACAPONE
     Dosage: ONE TABLET EVERY DAY
  3. CARBIDOPA\LEVODOPA [Suspect]
     Active Substance: CARBIDOPA\LEVODOPA
     Indication: Parkinson^s disease
     Dates: start: 20220512
  4. XARELTO [Suspect]
     Active Substance: RIVAROXABAN
     Indication: Product used for unknown indication
  5. RACECADOTRIL [Concomitant]
     Active Substance: RACECADOTRIL

REACTIONS (13)
  - Loss of consciousness [Recovering/Resolving]
  - Gastrointestinal haemorrhage [Recovering/Resolving]
  - Gastric ulcer haemorrhage [Unknown]
  - Wrong technique in product usage process [Unknown]
  - Faeces discoloured [Unknown]
  - Diarrhoea [Not Recovered/Not Resolved]
  - Haemoglobin decreased [Not Recovered/Not Resolved]
  - Dizziness [Not Recovered/Not Resolved]
  - Chest pain [Recovering/Resolving]
  - Ill-defined disorder [Not Recovered/Not Resolved]
  - Hypersexuality [Unknown]
  - Palpitations [Unknown]
  - Aspiration [Unknown]

NARRATIVE: CASE EVENT DATE: 20240101
